FAERS Safety Report 8762440 (Version 1)
Quarter: 2012Q4

REPORT INFORMATION
  Report Type: 
  Country: US (occurrence: US)
  Receive Date: 20120904
  Receipt Date: 20120904
  Transmission Date: 20130627
  Serious: No
  Sender: FDA-Public Use
  Company Number: US-PFIZER INC-2012210800

PATIENT
  Age: 69 Year
  Sex: Female
  Weight: 102.5 kg

DRUGS (7)
  1. HYDROCORTISONE [Suspect]
     Indication: ADRENALECTOMY
     Dosage: UNK
     Dates: start: 2008
  2. SUTENT [Suspect]
     Indication: OVARIAN CANCER
     Dosage: 50 mg, 1x/day
     Route: 048
     Dates: start: 20120419
  3. DOXIL [Suspect]
     Indication: OVARIAN CANCER
     Dosage: UNK
     Route: 042
     Dates: start: 20120707
  4. MAGNESIUM OXIDE [Concomitant]
     Dosage: UNK
  5. ALLOPURINOL [Concomitant]
     Dosage: 100 mg, 2x/day
  6. LEVOTHYROXINE [Concomitant]
     Indication: HYPOTHYROIDISM
     Dosage: UNK, 1x/day
  7. IRON [Concomitant]
     Dosage: 65 mg, 1x/day

REACTIONS (4)
  - Dysgeusia [Not Recovered/Not Resolved]
  - Musculoskeletal pain [Not Recovered/Not Resolved]
  - Diarrhoea [Not Recovered/Not Resolved]
  - Constipation [Recovered/Resolved]
